FAERS Safety Report 7467208-2 (Version None)
Quarter: 2011Q2

REPORT INFORMATION
  Report Type: 
  Country: None (occurrence: None)
  Receive Date: 20110509
  Receipt Date: 20110426
  Transmission Date: 20111010
  Serious: Yes (Hospitalization, Other)
  Sender: FDA-Public Use
  Company Number: US-BAYER-2011-007999

PATIENT
  Age: 22 Year
  Sex: Female
  Weight: 84.354 kg

DRUGS (10)
  1. YAZ [Suspect]
     Indication: ACNE
     Dosage: UNK
     Dates: start: 20080101, end: 20090101
  2. DROSPIRENONE AND ETHINYL ESTRADIOL [Suspect]
     Indication: ACNE
  3. INDOMETHACIN [Concomitant]
     Dosage: 25 MG, UNK
     Route: 048
     Dates: start: 20081205
  4. TRAMADOL HCL [Concomitant]
     Dosage: 50 MG, UNK
     Route: 048
     Dates: start: 20081205
  5. CLOTRIMAZOLE [Concomitant]
     Dosage: UNK
     Route: 067
     Dates: start: 20090115
  6. YASMIN [Suspect]
     Indication: ACNE
  7. PRENAVITE [Concomitant]
     Dosage: UNK
     Route: 048
     Dates: start: 20090115
  8. CLINDAMYCIN [Concomitant]
     Dosage: 1 UNK, UNK
     Route: 061
     Dates: start: 20081205
  9. PHENAZOPYRIDINE HCL TAB [Concomitant]
     Dosage: 100 MG, UNK
     Route: 048
     Dates: start: 20081205
  10. NITROFURANTOIN [Concomitant]
     Dosage: 100 MG, UNK
     Route: 048
     Dates: start: 20081205

REACTIONS (3)
  - PAIN [None]
  - GALLBLADDER DISORDER [None]
  - CHOLELITHIASIS [None]
